FAERS Safety Report 6355985-3 (Version None)
Quarter: 2009Q3

REPORT INFORMATION
  Report Type: 
  Country: None (occurrence: None)
  Receive Date: 20090914
  Receipt Date: 20090914
  Transmission Date: 20100115
  Serious: Yes (Life-Threatening, Hospitalization)
  Sender: FDA-Public Use
  Company Number: None

PATIENT
  Age: 45 Year
  Sex: Female
  Weight: 79.3795 kg

DRUGS (2)
  1. SAVELLA [Suspect]
     Indication: MIGRAINE
     Dosage: DAILY PO
     Route: 048
     Dates: start: 20090413, end: 20090828
  2. BISOPROLOL 5 [Suspect]
     Indication: MIGRAINE
     Dosage: 1TAB DAILY PO
     Route: 048
     Dates: start: 20090413, end: 20090911

REACTIONS (6)
  - DRUG HYPERSENSITIVITY [None]
  - ERYTHEMA [None]
  - LIP SWELLING [None]
  - PHARYNGEAL OEDEMA [None]
  - RASH [None]
  - SWOLLEN TONGUE [None]
